FAERS Safety Report 12965212 (Version 4)
Quarter: 2017Q2

REPORT INFORMATION
  Report Type: Spontaneous
  Country: JP (occurrence: JP)
  Receive Date: 20161122
  Receipt Date: 20170406
  Transmission Date: 20170830
  Serious: Yes (Death, Other)
  Sender: FDA-Public Use
  Company Number: JP-MALLINCKRODT-T201605895

PATIENT
  Age: 58 Year
  Sex: Male
  Weight: 52 kg

DRUGS (28)
  1. BETAMETHASONE. [Concomitant]
     Active Substance: BETAMETHASONE
     Indication: ANALGESIC THERAPY
     Dosage: 4 DF, UNK
     Route: 048
     Dates: end: 20151103
  2. BETAMETHASONE. [Concomitant]
     Active Substance: BETAMETHASONE
     Dosage: 1 DF, UNK
     Route: 048
     Dates: start: 20151203, end: 20160303
  3. BUSCOPAN [Concomitant]
     Active Substance: BUTYLSCOPOLAMINE BROMIDE
     Indication: ANALGESIC THERAPY
     Dosage: 1 DF
     Route: 048
     Dates: start: 20160212
  4. LYRICA [Concomitant]
     Active Substance: PREGABALIN
     Indication: ANALGESIC THERAPY
     Dosage: 4 DF, UNK
     Route: 048
     Dates: end: 20160503
  5. PRIMPERAN [Concomitant]
     Active Substance: METOCLOPRAMIDE HYDROCHLORIDE
     Dosage: 3 DF, UNK
     Route: 048
     Dates: start: 20151202, end: 20151209
  6. FUNGIZONE [Concomitant]
     Active Substance: AMPHOTERICIN B
     Dosage: 400 MG
     Route: 048
     Dates: start: 20160216, end: 20160314
  7. ZOMETA [Suspect]
     Active Substance: ZOLEDRONIC ACID
     Indication: ANALGESIC THERAPY
     Dosage: 4 MG DAILY DOSE
     Route: 051
     Dates: end: 20150901
  8. BETAMETHASONE. [Concomitant]
     Active Substance: BETAMETHASONE
     Dosage: 3 DF, UNK
     Route: 048
     Dates: start: 20151104, end: 20151111
  9. MAGMITT [Concomitant]
     Active Substance: MAGNESIUM OXIDE
     Dosage: 3 DF, UNK
     Route: 048
     Dates: end: 20160503
  10. MINOCYCLINE HYDROCHLORIDE. [Concomitant]
     Active Substance: MINOCYCLINE HYDROCHLORIDE
     Dosage: 4 DF, UNK
     Route: 048
     Dates: start: 20151028
  11. PREDNISOLONE. [Concomitant]
     Active Substance: PREDNISOLONE
     Indication: ANALGESIC THERAPY
     Dosage: 1 DF
     Route: 048
     Dates: start: 20160304, end: 20160503
  12. METHADONE [Suspect]
     Active Substance: METHADONE HYDROCHLORIDE
     Indication: CANCER PAIN
     Dosage: 10 MG (30 MG DAILY DOSE)
     Route: 048
     Dates: start: 20150916, end: 20151001
  13. METHADONE [Suspect]
     Active Substance: METHADONE HYDROCHLORIDE
     Dosage: 20 MG (60 MG DAILY DOSE)
     Route: 048
     Dates: start: 20151028, end: 20160504
  14. TAKEPRON [Concomitant]
     Active Substance: LANSOPRAZOLE
     Dosage: 2 DF, UNK
     Route: 048
     Dates: end: 20160503
  15. SENNOSIDE [Concomitant]
     Active Substance: SENNOSIDES
     Dosage: 2 DF, UNK
     Route: 048
     Dates: end: 20160503
  16. SYMBICORT [Concomitant]
     Active Substance: BUDESONIDE\FORMOTEROL FUMARATE DIHYDRATE
     Dosage: 6 DF, 2 DF, UNK
     Dates: end: 20160503
  17. HACHIAZULE [Concomitant]
     Dosage: 1 DF, UNK
     Route: 049
     Dates: start: 20151008
  18. METHADONE [Suspect]
     Active Substance: METHADONE HYDROCHLORIDE
     Dosage: 15 MG (45 MG DAILY DOSE)
     Route: 048
     Dates: start: 20151002, end: 20151027
  19. DOCETAXEL. [Concomitant]
     Active Substance: DOCETAXEL
     Dosage: UNK
     Route: 051
     Dates: start: 20160209, end: 20160321
  20. SEROQUEL [Concomitant]
     Active Substance: QUETIAPINE FUMARATE
     Dosage: 1 DF
     Route: 048
     Dates: start: 20160426, end: 20160504
  21. BETAMETHASONE. [Concomitant]
     Active Substance: BETAMETHASONE
     Dosage: 2 DF, UNK
     Route: 048
     Dates: start: 20151112, end: 20151118
  22. CALONAL [Concomitant]
     Active Substance: ACETAMINOPHEN
     Indication: ANALGESIC THERAPY
     Dosage: 3 DF, UNK
     Route: 048
     Dates: start: 20151127, end: 20160503
  23. OXINORM [Concomitant]
     Active Substance: OXYCODONE HYDROCHLORIDE
     Indication: ANALGESIC THERAPY
     Dosage: 40-50 MG, PRN
     Route: 048
     Dates: start: 20150915
  24. VOLTAREN [Concomitant]
     Active Substance: DICLOFENAC SODIUM
     Indication: ANALGESIC THERAPY
     Dosage: 2 DF, UNK
     Route: 048
     Dates: end: 20160503
  25. BETAMETHASONE. [Concomitant]
     Active Substance: BETAMETHASONE
     Dosage: 1.5 DF, UNK
     Route: 048
     Dates: start: 20151119, end: 20151202
  26. UNASYN [Concomitant]
     Active Substance: AMPICILLIN SODIUM\SULBACTAM SODIUM
     Dosage: 3 DF, UNK
     Route: 048
     Dates: start: 20151120, end: 20160503
  27. SEROQUEL [Concomitant]
     Active Substance: QUETIAPINE FUMARATE
     Dosage: 0.5 DF
     Route: 048
     Dates: start: 20160426, end: 20160504
  28. RISPERIDONE. [Concomitant]
     Active Substance: RISPERIDONE
     Dosage: 1 DF
     Route: 048
     Dates: start: 20160418, end: 20160422

REACTIONS (2)
  - Non-small cell lung cancer [Fatal]
  - Osteonecrosis of jaw [Recovered/Resolved]

NARRATIVE: CASE EVENT DATE: 20150928
